FAERS Safety Report 6747074-0 (Version None)
Quarter: 2010Q2

REPORT INFORMATION
  Report Type: 
  Country: None (occurrence: None)
  Receive Date: 20100528
  Receipt Date: 20100519
  Transmission Date: 20101027
  Serious: Yes (Other)
  Sender: FDA-Public Use
  Company Number: JP-ABBOTT-09P-087-0604910-00

PATIENT
  Sex: Female
  Weight: 46.8 kg

DRUGS (13)
  1. HUMIRA [Suspect]
     Indication: JUVENILE ARTHRITIS
     Route: 058
     Dates: start: 20081031, end: 20091018
  2. IBRUPROFEN [Concomitant]
     Indication: JUVENILE ARTHRITIS
     Route: 048
     Dates: start: 20080729
  3. IBRUPROFEN [Concomitant]
     Route: 048
     Dates: start: 20091019
  4. VOLTAREN [Concomitant]
     Indication: JUVENILE ARTHRITIS
     Route: 048
     Dates: start: 20081009
  5. FOLIAMIN [Concomitant]
     Indication: VITAMIN SUPPLEMENTATION
     Route: 048
  6. MUCOSTA [Concomitant]
     Indication: GASTRITIS PROPHYLAXIS
     Route: 048
  7. HYALEIN [Concomitant]
     Indication: SJOGREN'S SYNDROME
     Dates: start: 20080804
  8. PRIMPERAN TAB [Concomitant]
     Indication: ADVERSE DRUG REACTION
     Route: 048
     Dates: start: 20081222
  9. GASTER D [Concomitant]
     Indication: ABDOMINAL PAIN UPPER
     Route: 048
     Dates: start: 20090514, end: 20090802
  10. GASTER D [Concomitant]
     Indication: NAUSEA
  11. METHOTREXATE [Concomitant]
     Indication: JUVENILE ARTHRITIS
     Route: 048
     Dates: start: 20080723
  12. PREDNISOLONE [Concomitant]
     Indication: JUVENILE ARTHRITIS
     Route: 048
     Dates: start: 20080805
  13. ACUATIM [Concomitant]
     Indication: ACNE
     Dates: start: 20081128

REACTIONS (1)
  - HEPATITIS B [None]
